FAERS Safety Report 18062475 (Version 1)
Quarter: 2020Q3

REPORT INFORMATION
  Report Type: Spontaneous
  Country: US (occurrence: US)
  Receive Date: 20200723
  Receipt Date: 20200723
  Transmission Date: 20201103
  Serious: No
  Sender: FDA-Public Use
  Company Number: US-IGSA-SR10008896

PATIENT
  Age: 59 Year
  Sex: Female
  Weight: 70.5 kg

DRUGS (9)
  1. ADVIL [Concomitant]
     Active Substance: IBUPROFEN
     Indication: IMPAIRED GASTRIC EMPTYING
  2. GAMUNEX?C [Suspect]
     Active Substance: HUMAN IMMUNOGLOBULIN G
     Indication: IMPAIRED GASTRIC EMPTYING
     Dosage: 3 G, UNKNOWN
     Route: 042
     Dates: start: 20180902
  3. GAMUNEX?C [Suspect]
     Active Substance: HUMAN IMMUNOGLOBULIN G
     Dosage: 3 G, UNKNOWN
     Route: 042
     Dates: start: 201903
  4. ZOFRAN [Concomitant]
     Active Substance: ONDANSETRON HYDROCHLORIDE
     Indication: IMPAIRED GASTRIC EMPTYING
  5. PHENERGAN [Concomitant]
     Active Substance: PROMETHAZINE HYDROCHLORIDE
     Indication: IMPAIRED GASTRIC EMPTYING
  6. PEPCID                             /00305201/ [Concomitant]
     Active Substance: ALUMINUM HYDROXIDE\MAGNESIUM CARBONATE
     Indication: IMPAIRED GASTRIC EMPTYING
  7. TYLENOL [Concomitant]
     Active Substance: ACETAMINOPHEN
     Indication: IMPAIRED GASTRIC EMPTYING
  8. HYDROXYZINE [Concomitant]
     Active Substance: HYDROXYZINE HYDROCHLORIDE
     Indication: IMPAIRED GASTRIC EMPTYING
  9. LYRICA [Concomitant]
     Active Substance: PREGABALIN
     Indication: IMPAIRED GASTRIC EMPTYING

REACTIONS (6)
  - Pyrexia [Recovered/Resolved]
  - Drug ineffective for unapproved indication [Recovered/Resolved]
  - Nausea [Recovered/Resolved]
  - Chills [Recovered/Resolved]
  - Headache [Recovered/Resolved]
  - Fatigue [Recovered/Resolved]

NARRATIVE: CASE EVENT DATE: 20180902
